FAERS Safety Report 9788571 (Version 3)
Quarter: 2014Q1

REPORT INFORMATION
  Report Type: Spontaneous
  Country: US (occurrence: US)
  Receive Date: 20131230
  Receipt Date: 20140331
  Transmission Date: 20141002
  Serious: Yes (Other)
  Sender: FDA-Public Use
  Company Number: PHEH2013US024678

PATIENT
  Age: 58 Year
  Sex: Female
  Weight: 63.5 kg

DRUGS (3)
  1. GILENYA [Suspect]
     Indication: RELAPSING-REMITTING MULTIPLE SCLEROSIS
     Dosage: 0.5 MG, QD
     Route: 048
     Dates: start: 20110418
  2. ESTRADIOL [Concomitant]
     Dosage: 10 UG, UNK
     Route: 067
  3. PROGESTERONE [Concomitant]
     Dosage: 25 MG / 0.5 GM
     Route: 061

REACTIONS (3)
  - Human papilloma virus test positive [Not Recovered/Not Resolved]
  - Smear cervix abnormal [Not Recovered/Not Resolved]
  - Cervical dysplasia [Recovered/Resolved]
